FAERS Safety Report 13626601 (Version 2)
Quarter: 2019Q2

REPORT INFORMATION
  Report Type: Report from Study
  Country: US (occurrence: US)
  Receive Date: 20170607
  Receipt Date: 20190401
  Transmission Date: 20190711
  Serious: Yes (Other)
  Sender: FDA-Public Use
  Company Number: US-SA-2017SA100292

PATIENT
  Age: 66 Year
  Sex: Female

DRUGS (2)
  1. INSULIN GLARGINE [Suspect]
     Active Substance: INSULIN GLARGINE
     Indication: TYPE 2 DIABETES MELLITUS
     Dosage: 20 DF, BID
     Route: 051
     Dates: start: 2016
  2. INSULIN GLARGINE [Suspect]
     Active Substance: INSULIN GLARGINE
     Dosage: 100 U, QD
     Route: 058

REACTIONS (8)
  - Retinal oedema [Unknown]
  - Incorrect dose administered [Unknown]
  - Visual impairment [Unknown]
  - Ocular hyperaemia [Unknown]
  - Ocular discomfort [Unknown]
  - Blindness [Unknown]
  - Device issue [Unknown]
  - Inappropriate schedule of product administration [Unknown]

NARRATIVE: CASE EVENT DATE: 2016
